FAERS Safety Report 9121219 (Version 1)
Quarter: 2013Q1

REPORT INFORMATION
  Report Type: Spontaneous
  Country: US (occurrence: US)
  Receive Date: 20130225
  Receipt Date: 20130225
  Transmission Date: 20140127
  Serious: No
  Sender: FDA-Public Use
  Company Number: US-009507513-1302USA008310

PATIENT
  Sex: Female

DRUGS (6)
  1. COZAAR [Suspect]
     Dosage: 25 MG, UNK
     Route: 048
     Dates: start: 201209
  2. COZAAR [Suspect]
     Dosage: 50 MG, UNK
     Route: 048
     Dates: start: 201211
  3. PRINIVIL [Suspect]
     Dosage: UNK
     Route: 048
     Dates: start: 201207
  4. PRINIVIL [Suspect]
     Dosage: UNK
     Route: 048
  5. ENALAPRIL MALEATE [Suspect]
     Route: 048
  6. HYDROCHLOROTHIAZIDE [Concomitant]
     Dosage: UNK
     Dates: start: 201211, end: 201212

REACTIONS (7)
  - Hypertension [Unknown]
  - Balance disorder [Not Recovered/Not Resolved]
  - Dizziness [Not Recovered/Not Resolved]
  - Urine output increased [Unknown]
  - Hypoaesthesia [Recovered/Resolved]
  - Frequent bowel movements [Unknown]
  - Cough [Unknown]
